FAERS Safety Report 15238411 (Version 1)
Quarter: 2018Q3

REPORT INFORMATION
  Report Type: Spontaneous
  Country: US (occurrence: US)
  Receive Date: 20180710
  Receipt Date: 20180710
  Transmission Date: 20181010
  Serious: Yes (Other)
  Sender: FDA-Public Use
  Company Number: None

PATIENT
  Age: 77 Year
  Sex: Male
  Weight: 93.6 kg

DRUGS (17)
  1. ZOLOFT [Concomitant]
     Active Substance: SERTRALINE HYDROCHLORIDE
  2. ARICEPT [Concomitant]
     Active Substance: DONEPEZIL HYDROCHLORIDE
  3. COENZYME Q10 [Concomitant]
     Active Substance: UBIDECARENONE
  4. OXYBUTYNIN CL ER 5MG OR REP DITROPAN XL 5 MG [Suspect]
     Active Substance: OXYBUTYNIN CHLORIDE
  5. ASPRIN [Concomitant]
     Active Substance: ASPIRIN
  6. FLOROMETHALONE [Concomitant]
  7. CLONAZEPAM. [Concomitant]
     Active Substance: CLONAZEPAM
  8. SEREQUEL [Concomitant]
  9. NAMENDA [Concomitant]
     Active Substance: MEMANTINE HYDROCHLORIDE
  10. TRAMADOL. [Concomitant]
     Active Substance: TRAMADOL
  11. ASCORBIC ACID. [Concomitant]
     Active Substance: ASCORBIC ACID
  12. SIMVASTIN [Concomitant]
     Active Substance: SIMVASTATIN
  13. BRIMONIDINE [Concomitant]
     Active Substance: BRIMONIDINE TARTRATE
  14. FINASTERIDE. [Concomitant]
     Active Substance: FINASTERIDE
  15. VITAMIN D [Concomitant]
     Active Substance: CHOLECALCIFEROL
  16. MONTELUKAST [Concomitant]
     Active Substance: MONTELUKAST SODIUM
  17. MULTIVITAMIN [Concomitant]
     Active Substance: VITAMINS

REACTIONS (7)
  - Urinary incontinence [None]
  - Confusional state [None]
  - Dementia [None]
  - Agitation [None]
  - Anger [None]
  - Unevaluable event [None]
  - Adverse event [None]

NARRATIVE: CASE EVENT DATE: 20180511
